FAERS Safety Report 9162014 (Version 2)
Quarter: 2013Q2

REPORT INFORMATION
  Report Type: Spontaneous
  Country: US (occurrence: US)
  Receive Date: 20130314
  Receipt Date: 20130502
  Transmission Date: 20140414
  Serious: Yes (Other)
  Sender: FDA-Public Use
  Company Number: US-JNJFOC-20130300990

PATIENT
  Sex: Female
  Weight: 49.9 kg

DRUGS (4)
  1. REMICADE [Suspect]
     Indication: RHEUMATOID ARTHRITIS
     Route: 042
     Dates: start: 2006, end: 2009
  2. ORENCIA [Suspect]
     Indication: PRODUCT USED FOR UNKNOWN INDICATION
     Route: 065
  3. METHOTREXATE [Suspect]
     Indication: RHEUMATOID ARTHRITIS
     Route: 065
     Dates: start: 2006
  4. VICODIN [Concomitant]
     Indication: ARTHRALGIA
     Dosage: AS NEEDED
     Route: 048

REACTIONS (5)
  - Transient ischaemic attack [Recovering/Resolving]
  - Migraine [Not Recovered/Not Resolved]
  - Autoimmune thyroiditis [Unknown]
  - Blood homocysteine abnormal [Unknown]
  - Arthralgia [Unknown]
